FAERS Safety Report 24365930 (Version 1)
Quarter: 2024Q3

REPORT INFORMATION
  Report Type: Spontaneous
  Country: US (occurrence: None)
  Receive Date: 20240925
  Receipt Date: 20240925
  Transmission Date: 20241016
  Serious: No
  Sender: Public
  Company Number: None

PATIENT
  Age: 66 Year
  Sex: Male
  Weight: 92.08 kg

DRUGS (1)
  1. GAMUNEX-C [Suspect]
     Active Substance: HUMAN IMMUNOGLOBULIN G
     Indication: Hypogammaglobulinaemia
     Dosage: INFUSE 40GM INTRAVENOUSLY EVERY 4 WEEKS AS DIRECTED?
     Route: 042
     Dates: start: 202403

REACTIONS (2)
  - COVID-19 [None]
  - Therapy interrupted [None]
